FAERS Safety Report 16022182 (Version 1)
Quarter: 2019Q1

REPORT INFORMATION
  Report Type: Spontaneous
  Country: US (occurrence: US)
  Receive Date: 20190301
  Receipt Date: 20190301
  Transmission Date: 20190418
  Serious: Yes (Hospitalization, Other)
  Sender: FDA-Public Use
  Company Number: US-ALEMBIC PHARMACUETICALS LIMITED-2019SCAL000120

PATIENT

DRUGS (3)
  1. DOXYCYCLINE. [Suspect]
     Active Substance: DOXYCYCLINE
     Indication: PRODUCT USED FOR UNKNOWN INDICATION
     Dosage: 500 MILLIGRAM
  2. DOXYCYCLINE. [Suspect]
     Active Substance: DOXYCYCLINE
     Dosage: 300 MILLIGRAM
  3. IOHEXOL [Concomitant]
     Active Substance: IOHEXOL
     Indication: SCLEROTHERAPY
     Dosage: 10 ML (WATER-SOLUBLE CONTRAST)

REACTIONS (7)
  - Chromaturia [Recovered/Resolved]
  - Hypoglycaemia neonatal [Recovered/Resolved]
  - Metabolic acidosis [Recovered/Resolved]
  - Neonatal hypoxia [Recovered/Resolved]
  - Haemolytic anaemia [Recovered/Resolved]
  - Cyanosis neonatal [Recovered/Resolved]
  - Methaemoglobinaemia [Recovered/Resolved]
